FAERS Safety Report 19868072 (Version 1)
Quarter: 2021Q3

REPORT INFORMATION
  Report Type: Spontaneous
  Country: US (occurrence: US)
  Receive Date: 20210922
  Receipt Date: 20210922
  Transmission Date: 20211014
  Serious: No
  Sender: FDA-Public Use
  Company Number: US-UNITED THERAPEUTICS-UNT-2021-018125

PATIENT
  Sex: Female

DRUGS (2)
  1. REMODULIN [Suspect]
     Active Substance: TREPROSTINIL
     Indication: PULMONARY ARTERIAL HYPERTENSION
     Dosage: UNK, CONTINUING
     Route: 058
     Dates: start: 20210819
  2. REMODULIN [Suspect]
     Active Substance: TREPROSTINIL
     Dosage: 0.0293 ?G/KG, CONTINUING
     Route: 058
     Dates: start: 2021

REACTIONS (3)
  - Infusion site pain [Unknown]
  - Infusion site extravasation [Unknown]
  - Impaired healing [Unknown]

NARRATIVE: CASE EVENT DATE: 2021
